FAERS Safety Report 20945620 (Version 5)
Quarter: 2022Q3

REPORT INFORMATION
  Report Type: Spontaneous
  Country: ZA (occurrence: ZA)
  Receive Date: 20220610
  Receipt Date: 20220628
  Transmission Date: 20221026
  Serious: Yes (Life-Threatening, Hospitalization, Other)
  Sender: FDA-Public Use
  Company Number: ZA-NOVARTISPH-NVSC2022ZA133466

PATIENT
  Age: 55 Year
  Sex: Female

DRUGS (4)
  1. ACLASTA [Suspect]
     Active Substance: ZOLEDRONIC ACID
     Indication: Osteoporosis
     Dosage: 1 DOSAGE FORM, Q12MO
     Route: 042
     Dates: start: 20220531, end: 20220531
  2. FOSAVANCE [Suspect]
     Active Substance: ALENDRONATE SODIUM\CHOLECALCIFEROL
     Indication: Product used for unknown indication
     Dosage: 20 G
     Route: 048
  3. TORGET PLUS [Concomitant]
     Indication: Product used for unknown indication
     Dosage: 10 MG, QD
     Route: 065
  4. ETOZOX [Concomitant]
     Indication: Product used for unknown indication
     Dosage: 75 MG, QD
     Route: 065

REACTIONS (16)
  - Feeling abnormal [Recovered/Resolved]
  - Infection [Not Recovered/Not Resolved]
  - Pain [Not Recovered/Not Resolved]
  - Appendicitis [Recovering/Resolving]
  - Chronic gastritis [Recovering/Resolving]
  - Abdominal pain upper [Recovering/Resolving]
  - Gingival pain [Unknown]
  - Back disorder [Unknown]
  - Gastrointestinal disorder [Unknown]
  - Ocular hyperaemia [Unknown]
  - Eye pain [Unknown]
  - Infusion related reaction [Recovered/Resolved]
  - Dyspnoea [Unknown]
  - Bone pain [Unknown]
  - Toothache [Unknown]
  - Pain in jaw [Unknown]

NARRATIVE: CASE EVENT DATE: 20220601
